FAERS Safety Report 7331112-0 (Version None)
Quarter: 2011Q1

REPORT INFORMATION
  Report Type: 
  Country: None (occurrence: None)
  Receive Date: 20110228
  Receipt Date: 20110228
  Transmission Date: 20110831
  Serious: Yes (Life-Threatening, Disabling, Other)
  Sender: FDA-Public Use
  Company Number: None

PATIENT
  Sex: Male
  Weight: 127.3 kg

DRUGS (2)
  1. RISPERIDONE [Suspect]
     Indication: MANIA
     Dosage: MANY OVERDOSES OVER 42+ YEARS
  2. RISPERIDONE [Suspect]
     Indication: DISABILITY
     Dosage: MANY OVERDOSES OVER 42+ YEARS

REACTIONS (6)
  - ORGAN FAILURE [None]
  - MUSCULOSKELETAL PAIN [None]
  - MEMORY IMPAIRMENT [None]
  - PAIN [None]
  - DYSARTHRIA [None]
  - TOXICITY TO VARIOUS AGENTS [None]
